FAERS Safety Report 5673610-1 (Version None)
Quarter: 2008Q2

REPORT INFORMATION
  Report Type: 
  Country: None (occurrence: None)
  Receive Date: 20080225
  Receipt Date: 20070124
  Transmission Date: 20081010
  Serious: Yes (Life-Threatening, Hospitalization)
  Sender: FDA-Public Use
  Company Number: WAES 0701USA04789

PATIENT
  Sex: Female

DRUGS (1)
  1. SIMVASTATIN [Suspect]
     Dosage: 80 MG/DAILY/PO
     Route: 048
     Dates: start: 20070103, end: 20070101

REACTIONS (1)
  - RHABDOMYOLYSIS [None]
